FAERS Safety Report 10722129 (Version 1)
Quarter: 2015Q1

REPORT INFORMATION
  Report Type: Report from Study
  Country: ES (occurrence: ES)
  Receive Date: 20150120
  Receipt Date: 20150120
  Transmission Date: 20150721
  Serious: Yes (Other)
  Sender: FDA-Public Use
  Company Number: ES-ROCHE-1520703

PATIENT
  Sex: Female

DRUGS (2)
  1. BEVACIZUMAB [Suspect]
     Active Substance: BEVACIZUMAB
     Indication: BREAST CANCER METASTATIC
     Dosage: ON DAYS 1 AND 15 EVERY 28 DAYS
     Route: 065
  2. PACLITAXEL. [Suspect]
     Active Substance: PACLITAXEL
     Indication: BREAST CANCER METASTATIC
     Dosage: ON DAYS 1, 8 AND 15 EVERY 28 DAYS
     Route: 065

REACTIONS (13)
  - Proteinuria [Unknown]
  - Neutropenia [Unknown]
  - Febrile neutropenia [Unknown]
  - Hypertension [Unknown]
  - Embolism [Unknown]
  - Epistaxis [Unknown]
  - Thrombocytopenia [Unknown]
  - Neuropathy peripheral [Unknown]
  - Gastrointestinal haemorrhage [Unknown]
  - Asthenia [Unknown]
  - Mucosal inflammation [Unknown]
  - Haemorrhage [Unknown]
  - Cerebrovascular accident [Unknown]
